FAERS Safety Report 21445601 (Version 1)
Quarter: 2022Q4

REPORT INFORMATION
  Report Type: Spontaneous
  Country: HR (occurrence: None)
  Receive Date: 20221012
  Receipt Date: 20221012
  Transmission Date: 20230113
  Serious: Yes (Other)
  Sender: FDA-Public Use
  Company Number: 2022A336426

PATIENT
  Sex: Female
  Weight: 68 kg

DRUGS (2)
  1. QUETIAPINE [Suspect]
     Active Substance: QUETIAPINE
     Dosage: 60TBL.X25MG
     Route: 048
     Dates: start: 20220826, end: 20220826
  2. ZOPICLONE [Suspect]
     Active Substance: ZOPICLONE
     Dosage: 30TBL.X7.5MG
     Route: 048
     Dates: start: 20220826, end: 20220826

REACTIONS (4)
  - Intentional overdose [Unknown]
  - Suicide attempt [Unknown]
  - Tachycardia [Unknown]
  - Somnolence [Unknown]

NARRATIVE: CASE EVENT DATE: 20220826
